FAERS Safety Report 12203991 (Version 2)
Quarter: 2016Q2

REPORT INFORMATION
  Report Type: Spontaneous
  Country: US (occurrence: US)
  Receive Date: 20160323
  Receipt Date: 20160414
  Transmission Date: 20160815
  Serious: No
  Sender: FDA-Public Use
  Company Number: US-TEVA-639418ACC

PATIENT
  Sex: Female

DRUGS (1)
  1. PLAN B ONE-STEP [Suspect]
     Active Substance: LEVONORGESTREL
     Indication: POST COITAL CONTRACEPTION
     Route: 065

REACTIONS (7)
  - Abdominal discomfort [Not Recovered/Not Resolved]
  - Intentional product misuse [Unknown]
  - Headache [Unknown]
  - Menorrhagia [Recovered/Resolved]
  - Dizziness [Unknown]
  - Menstruation irregular [Recovered/Resolved]
  - Abdominal pain [Unknown]
